FAERS Safety Report 9774293 (Version 1)
Quarter: 2013Q4

REPORT INFORMATION
  Report Type: Spontaneous
  Country: AU (occurrence: AU)
  Receive Date: 20131220
  Receipt Date: 20131220
  Transmission Date: 20140711
  Serious: Yes (Death)
  Sender: FDA-Public Use
  Company Number: AU-CELGENEUS-008-POMAL-13121910

PATIENT
  Age: 35 Year
  Sex: Male

DRUGS (10)
  1. POMALYST [Suspect]
     Indication: PLASMA CELL MYELOMA
     Dosage: 4 MILLIGRAM
     Route: 048
     Dates: start: 20131009, end: 20131111
  2. GRANULOCYTE COLONY-STIMULATING FACTOR NOS [Concomitant]
     Indication: PRODUCT USED FOR UNKNOWN INDICATION
     Route: 065
  3. CEFEPIME [Concomitant]
     Indication: BACTERIAL SEPSIS
     Dosage: 4 GRAM
     Route: 041
     Dates: start: 2013, end: 20131206
  4. CEFEPIME [Concomitant]
     Indication: NEUTROPENIA
  5. VANCOMYCIN [Concomitant]
     Indication: BACTERIAL SEPSIS
     Dosage: 1 GRAM
     Route: 041
     Dates: start: 2013, end: 20131206
  6. VANCOMYCIN [Concomitant]
     Indication: NEUTROPENIA
  7. VALACICLOVIR [Concomitant]
     Indication: ANTIVIRAL PROPHYLAXIS
     Route: 065
  8. PREGABALIN [Concomitant]
     Indication: ANALGESIC THERAPY
     Route: 065
     Dates: end: 20131205
  9. FENTANYL [Concomitant]
     Indication: ANALGESIC THERAPY
     Route: 062
     Dates: end: 20131205
  10. LOPERAMIDE [Concomitant]
     Indication: STOMA CARE
     Route: 062
     Dates: end: 20131205

REACTIONS (2)
  - Haemorrhage intracranial [Fatal]
  - Fungal sepsis [Fatal]
